FAERS Safety Report 12667519 (Version 12)
Quarter: 2017Q3

REPORT INFORMATION
  Report Type: Spontaneous
  Country: PR (occurrence: PR)
  Receive Date: 20160819
  Receipt Date: 20170814
  Transmission Date: 20171127
  Serious: No
  Sender: FDA-Public Use
  Company Number: PR-PFIZER INC-2016391757

PATIENT
  Age: 54 Year
  Sex: Female
  Weight: 61.68 kg

DRUGS (13)
  1. LETROZOLE. [Concomitant]
     Active Substance: LETROZOLE
     Dosage: 2.5 MG, UNK
  2. NEUPOGEN [Concomitant]
     Active Substance: FILGRASTIM
     Dosage: UNK
  3. IBRANCE [Suspect]
     Active Substance: PALBOCICLIB
     Dosage: 100 MG, CYCLIC (1 CAP DAILY FOR 21 DAYS)
     Route: 048
     Dates: start: 20160713
  4. IBRANCE [Suspect]
     Active Substance: PALBOCICLIB
     Dosage: 125 MG, DAILY
     Route: 048
     Dates: start: 20160413
  5. IBRANCE [Suspect]
     Active Substance: PALBOCICLIB
     Indication: BREAST CANCER FEMALE
     Dosage: 100 MG, CYCLIC (1 CAP DAILY FOR 21 DAYS)
     Route: 048
     Dates: start: 20160713
  6. IBRANCE [Suspect]
     Active Substance: PALBOCICLIB
     Dosage: 100 MG, DAILY
     Route: 048
     Dates: start: 20160713
  7. IBRANCE [Suspect]
     Active Substance: PALBOCICLIB
     Dosage: 100 MG, CYCLIC (1 CAP DAILY FOR 21 DAYS)
     Route: 048
     Dates: start: 20160713
  8. IBRANCE [Suspect]
     Active Substance: PALBOCICLIB
     Dosage: 100 MG, CYCLIC (1 CAP DAILY FOR 21 DAYS)
     Route: 048
     Dates: start: 20160713
  9. IBRANCE [Suspect]
     Active Substance: PALBOCICLIB
     Dosage: 125 MG, CYCLIC (DAILY FOR 21 DAYS)
     Route: 048
     Dates: start: 20160713
  10. FASLODEX [Concomitant]
     Active Substance: FULVESTRANT
     Dosage: UNK
  11. IBRANCE [Suspect]
     Active Substance: PALBOCICLIB
     Dosage: 100 MG, CYCLIC (1 CAP DAILY FOR 21 DAYS)
     Route: 048
     Dates: start: 20160713
  12. IBRANCE [Suspect]
     Active Substance: PALBOCICLIB
     Dosage: 100 MG, DAILY
     Route: 048
     Dates: start: 20160713
  13. IBRANCE [Suspect]
     Active Substance: PALBOCICLIB
     Dosage: 100 MG, CYCLIC (DAILY FOR 21 DAYS)
     Route: 048
     Dates: start: 20160713

REACTIONS (19)
  - Neoplasm progression [Unknown]
  - Hot flush [Unknown]
  - Decreased appetite [Unknown]
  - Pyrexia [Recovered/Resolved]
  - Nausea [Unknown]
  - Arthralgia [Unknown]
  - Dyspnoea [Unknown]
  - Loss of personal independence in daily activities [Recovered/Resolved]
  - Dysgeusia [Unknown]
  - Somnolence [Unknown]
  - Chills [Unknown]
  - Nervousness [Unknown]
  - Cold sweat [Recovered/Resolved]
  - Tumour marker increased [Unknown]
  - Pain in jaw [Recovered/Resolved]
  - Headache [Unknown]
  - Haemoglobin decreased [Unknown]
  - Asthenia [Recovered/Resolved]
  - White blood cell count decreased [Recovered/Resolved]

NARRATIVE: CASE EVENT DATE: 2016
